FAERS Safety Report 5513864-5 (Version None)
Quarter: 2007Q4

REPORT INFORMATION
  Report Type: 
  Country: None (occurrence: None)
  Receive Date: 20071109
  Receipt Date: 20071109
  Transmission Date: 20080405
  Serious: Yes (Hospitalization)
  Sender: FDA-Public Use
  Company Number: None

PATIENT
  Sex: Male
  Weight: 66 kg

DRUGS (1)
  1. TEMOZOLOMIDE [Suspect]
     Dosage: 2940 MG
     Dates: end: 20071014

REACTIONS (2)
  - CEREBROVASCULAR ACCIDENT [None]
  - FALL [None]
